FAERS Safety Report 10424487 (Version 1)
Quarter: 2014Q3

REPORT INFORMATION
  Report Type: Spontaneous
  Country: US (occurrence: None)
  Receive Date: 20140722
  Receipt Date: 20140722
  Transmission Date: 20150326
  Serious: No
  Sender: FDA-Public Use
  Company Number: 163-10004-14050769

PATIENT
  Age: 65 Year
  Sex: Male
  Weight: 95.26 kg

DRUGS (4)
  1. CLOBETASOL PROPIONATE. [Concomitant]
     Active Substance: CLOBETASOL PROPIONATE
  2. TRIAMCINOLONE [Concomitant]
     Active Substance: TRIAMCINOLONE
  3. TESTOSTERONE SUPPLEMENT (TESTOSTERONE PROPIONATE) [Concomitant]
  4. OTEZLA [Suspect]
     Active Substance: APREMILAST
     Indication: PSORIATIC ARTHROPATHY
     Route: 048
     Dates: start: 20140424, end: 20140505

REACTIONS (7)
  - Pyrexia [None]
  - Nausea [None]
  - Decreased appetite [None]
  - Influenza like illness [None]
  - Diarrhoea [None]
  - Vomiting [None]
  - Rash [None]

NARRATIVE: CASE EVENT DATE: 201404
